FAERS Safety Report 23982824 (Version 1)
Quarter: 2024Q2

REPORT INFORMATION
  Report Type: Other
  Country: US (occurrence: US)
  Receive Date: 20240617
  Receipt Date: 20240617
  Transmission Date: 20240716
  Serious: Yes (Hospitalization)
  Sender: FDA-Public Use
  Company Number: US-HLS-202400159

PATIENT
  Age: 30 Year
  Sex: Male

DRUGS (4)
  1. CLOZAPINE [Suspect]
     Active Substance: CLOZAPINE
     Indication: Schizophrenia
     Dosage: CLOZAPINE WAS REINTRODUCED GRADUALLY AND TITRATED UP TO THE SAME DOSE PRIOR TO ADMISSION
     Route: 065
  2. CLOZAPINE [Suspect]
     Active Substance: CLOZAPINE
     Indication: Schizophrenia
     Route: 065
  3. VALPROIC ACID [Concomitant]
     Active Substance: VALPROIC ACID
     Indication: Schizophrenia
     Route: 065
  4. FLUOXETINE [Concomitant]
     Active Substance: FLUOXETINE HYDROCHLORIDE
     Indication: Schizophrenia
     Route: 065

REACTIONS (4)
  - Cholecystitis [Recovering/Resolving]
  - Neuroleptic malignant syndrome [Recovering/Resolving]
  - Septic shock [Recovering/Resolving]
  - Serotonin syndrome [Recovering/Resolving]
